FAERS Safety Report 8525714-3 (Version None)
Quarter: 2012Q3

REPORT INFORMATION
  Report Type: 
  Country: None (occurrence: None)
  Receive Date: 20120720
  Receipt Date: 20120710
  Transmission Date: 20120928
  Serious: Yes (Hospitalization, Disabling, Other)
  Sender: FDA-Public Use
  Company Number: CA-009507513-1108USA02801

PATIENT

DRUGS (9)
  1. FOSAMAX [Suspect]
     Indication: OSTEOPOROSIS
     Dosage: 10 MG, UNK
     Route: 048
     Dates: start: 19951101, end: 20010101
  2. BONIVA [Suspect]
     Indication: OSTEOPOROSIS
     Dosage: 150 MG, UNK
     Route: 048
     Dates: start: 20061001, end: 20090901
  3. MAGNESIUM (UNSPECIFIED) [Concomitant]
     Dosage: 400 MG, UNK
     Dates: start: 19950101
  4. FOSAMAX [Suspect]
     Dosage: 70 MG, UNK
     Route: 048
     Dates: start: 20010101, end: 20061001
  5. PRILOSEC [Concomitant]
     Dates: start: 19940101
  6. FOSAMAX [Suspect]
     Dosage: UNK
     Route: 048
     Dates: start: 19960131, end: 20021125
  7. MK-9278 [Concomitant]
     Dosage: UNK UNK, QD
     Dates: start: 19950101
  8. BORON (UNSPECIFIED) [Concomitant]
     Dosage: 3 MG, UNK
     Dates: start: 19950101
  9. PRILOSEC [Concomitant]
     Dates: start: 19940101

REACTIONS (24)
  - OVARIAN DISORDER [None]
  - HYDRONEPHROSIS [None]
  - BRONCHITIS CHRONIC [None]
  - LOW TURNOVER OSTEOPATHY [None]
  - ADVERSE EVENT [None]
  - OSTEOARTHRITIS [None]
  - EMPHYSEMA [None]
  - ASTHMA [None]
  - HYPERTENSION [None]
  - FRACTURE DELAYED UNION [None]
  - CALCULUS URETERIC [None]
  - VITAMIN D DEFICIENCY [None]
  - ARTHRITIS [None]
  - CHOLELITHIASIS [None]
  - FALL [None]
  - SQUAMOUS CELL CARCINOMA OF SKIN [None]
  - FEMUR FRACTURE [None]
  - NEPHROLITHIASIS [None]
  - BASAL CELL CARCINOMA [None]
  - HYPOTHYROIDISM [None]
  - CHRONIC OBSTRUCTIVE PULMONARY DISEASE [None]
  - JOINT EFFUSION [None]
  - OSTEOPENIA [None]
  - OEDEMA PERIPHERAL [None]
